FAERS Safety Report 4840713-0 (Version None)
Quarter: 2005Q4

REPORT INFORMATION
  Report Type: 
  Country: None (occurrence: None)
  Receive Date: 20051027
  Receipt Date: 20041230
  Transmission Date: 20060501
  Serious: Yes (Other)
  Sender: FDA-Public Use
  Company Number: HQWYE197916JUL04

PATIENT
  Age: 56 Year
  Sex: Female
  Weight: 57.2 kg

DRUGS (8)
  1. PREMARIN [Suspect]
     Indication: OESTROGEN REPLACEMENT THERAPY
     Dosage: ORAL
     Route: 048
     Dates: start: 19930908, end: 19980701
  2. MEDROXYPROGESTERONE [Suspect]
     Dates: start: 19930908, end: 19980701
  3. EVISTA [Concomitant]
  4. NORVASC [Concomitant]
  5. CARDIZEM [Concomitant]
  6. ATENOLOL [Concomitant]
  7. PREVACID [Concomitant]
  8. POTASSIUM CHLORIDE [Concomitant]

REACTIONS (1)
  - BREAST CANCER [None]
